FAERS Safety Report 24838351 (Version 4)
Quarter: 2025Q1

REPORT INFORMATION
  Report Type: Spontaneous
  Country: US (occurrence: US)
  Receive Date: 20250113
  Receipt Date: 20250213
  Transmission Date: 20250408
  Serious: No
  Sender: PFIZER
  Company Number: US-PFIZER INC-202500002071

PATIENT
  Age: 13 Year
  Sex: Male
  Weight: 41 kg

DRUGS (2)
  1. GENOTROPIN [Suspect]
     Active Substance: SOMATROPIN
     Indication: Growth hormone deficiency
     Dosage: 1.3 MG, ONE TIME A DAY, 7 DAYS/WEEK
  2. GENOTROPIN [Suspect]
     Active Substance: SOMATROPIN
     Dates: start: 2023

REACTIONS (5)
  - Device mechanical issue [Unknown]
  - Device physical property issue [Unknown]
  - Poor quality device used [Unknown]
  - Injection site pain [Unknown]
  - Drug dose omission by device [Unknown]
